FAERS Safety Report 22204442 (Version 2)
Quarter: 2023Q2

REPORT INFORMATION
  Report Type: Spontaneous
  Country: AU (occurrence: AU)
  Receive Date: 20230413
  Receipt Date: 20230428
  Transmission Date: 20230722
  Serious: Yes (Hospitalization)
  Sender: FDA-Public Use
  Company Number: AU-VIIV HEALTHCARE LIMITED-AU2023APC027843

PATIENT

DRUGS (2)
  1. RILPIVIRINE [Suspect]
     Active Substance: RILPIVIRINE
     Indication: HIV infection
     Dosage: UNK UNK, Q2M, 3 ML (600 MG) CABOTEGRAVIR AND 3ML (900 MG) RILPIVIRINE
     Route: 030
     Dates: start: 20230111
  2. CABOTEGRAVIR [Suspect]
     Active Substance: CABOTEGRAVIR
     Indication: HIV infection
     Dosage: UNK UNK, Q2M, 3 ML (600 MG) CABOTEGRAVIR AND 3ML (900 MG) RILPIVIRINE
     Route: 030
     Dates: start: 20230111

REACTIONS (3)
  - Erythema [Unknown]
  - Pyrexia [Unknown]
  - Injection site eczema [Unknown]
